FAERS Safety Report 11769725 (Version 4)
Quarter: 2016Q1

REPORT INFORMATION
  Report Type: Report from Study
  Country: CA (occurrence: CA)
  Receive Date: 20151123
  Receipt Date: 20160329
  Transmission Date: 20160525
  Serious: Yes (Hospitalization)
  Sender: FDA-Public Use
  Company Number: CA-TAKEDA-2015TUS015964

PATIENT
  Age: 50 Year
  Sex: Female

DRUGS (17)
  1. VITAMIN D3 [Concomitant]
     Active Substance: CHOLECALCIFEROL
     Dosage: 5000 IU, QD
  2. ESCITALOPRAM [Concomitant]
     Active Substance: ESCITALOPRAM OXALATE
     Dosage: 10 MG, QD
  3. DEHYDROEPIANDROSTERONE [Concomitant]
     Active Substance: PRASTERONE
     Dosage: 50 MG, QD
  4. IRON [Concomitant]
     Active Substance: IRON
     Dosage: UNK
  5. LANSOPRAZOLE. [Concomitant]
     Active Substance: LANSOPRAZOLE
     Dosage: 30 MG, QD
  6. COENZYME Q10 [Concomitant]
     Active Substance: UBIDECARENONE
     Dosage: 200 MG, QD
  7. KRILL OIL [Concomitant]
     Active Substance: DIETARY SUPPLEMENT
     Dosage: 3000 MG, BID
  8. VEDOLIZUMAB [Suspect]
     Active Substance: VEDOLIZUMAB
     Indication: CROHN^S DISEASE
     Dosage: 300 MG, UNK
     Route: 042
     Dates: start: 20150915
  9. CENTRUM SILVER [Concomitant]
     Active Substance: MINERALS\VITAMINS
     Dosage: UNK, QD
  10. ALPHA LIPOIC ACID [Concomitant]
     Active Substance: .ALPHA.-LIPOIC ACID
     Dosage: 200 MG, BID
  11. VITAMIN E [Concomitant]
     Active Substance: .ALPHA.-TOCOPHEROL
     Dosage: 1000 IU, QD
  12. FOLIC ACID. [Concomitant]
     Active Substance: FOLIC ACID
     Dosage: 3 IU, QD
  13. MSM JOINT FORMULA [Concomitant]
     Dosage: UNK, QD
  14. PREDNISONE. [Suspect]
     Active Substance: PREDNISONE
     Indication: PRODUCT USED FOR UNKNOWN INDICATION
     Dosage: UNK
     Route: 065
     Dates: start: 20150828
  15. SUPER B COMPLEX WITH C [Concomitant]
     Dosage: UNK, QD
  16. METAMUCIL [Concomitant]
     Active Substance: PLANTAGO SEED
     Dosage: UNK, QD
  17. TYLENOL WITH CODEIN #4 [Concomitant]

REACTIONS (12)
  - Oedema peripheral [Unknown]
  - Inflammation [Unknown]
  - Drug ineffective [Unknown]
  - Dyspnoea [Unknown]
  - Glossitis [Unknown]
  - Crohn^s disease [Unknown]
  - Off label use [Unknown]
  - Haemoglobin decreased [Unknown]
  - Malaise [Unknown]
  - Fistula inflammation [Unknown]
  - Arthralgia [Unknown]
  - Abscess [Unknown]

NARRATIVE: CASE EVENT DATE: 2015
